FAERS Safety Report 14229146 (Version 1)
Quarter: 2017Q4

REPORT INFORMATION
  Report Type: Spontaneous
  Country: US (occurrence: None)
  Receive Date: 20171124
  Receipt Date: 20171124
  Transmission Date: 20180321
  Serious: No
  Sender: FDA-Public Use
  Company Number: None

PATIENT
  Age: 68 Year
  Sex: Female

DRUGS (1)
  1. STIVARGA [Suspect]
     Active Substance: REGORAFENIB
     Indication: SOFT TISSUE SARCOMA
     Dosage: 160 MG DAILY FOR 21 DAYS EVERY 28 DAYS CYCLE ORALLY
     Route: 048
     Dates: start: 20170705, end: 20171007

REACTIONS (3)
  - Diarrhoea [None]
  - Palmar-plantar erythrodysaesthesia syndrome [None]
  - Drug ineffective [None]

NARRATIVE: CASE EVENT DATE: 20171007
